FAERS Safety Report 6446486-2 (Version None)
Quarter: 2009Q4

REPORT INFORMATION
  Report Type: 
  Country: None (occurrence: None)
  Receive Date: 20091119
  Receipt Date: 20091109
  Transmission Date: 20100525
  Serious: Yes (Other)
  Sender: FDA-Public Use
  Company Number: US-NOVOPROD-300765

PATIENT
  Sex: Female
  Weight: 61.995 kg

DRUGS (2)
  1. NOVOLOG [Suspect]
     Indication: TYPE 2 DIABETES MELLITUS
     Dosage: UNKNOWN, TID SLIDING SCALE
     Route: 058
     Dates: start: 19990101
  2. LEVEMIR [Suspect]
     Indication: TYPE 2 DIABETES MELLITUS
     Dosage: 40 IU, QD EVERY NIGHT
     Route: 058
     Dates: start: 19990101

REACTIONS (1)
  - SPINAL COLUMN STENOSIS [None]
